FAERS Safety Report 24578498 (Version 2)
Quarter: 2025Q1

REPORT INFORMATION
  Report Type: Report from Study
  Country: US (occurrence: US)
  Receive Date: 20241105
  Receipt Date: 20250131
  Transmission Date: 20250408
  Serious: Yes (Hospitalization)
  Sender: NOVO NORDISK
  Company Number: US-NOVOPROD-1308808

PATIENT
  Sex: Male

DRUGS (1)
  1. NOVOSEVEN RT [Suspect]
     Active Substance: COAGULATION FACTOR VIIA RECOMBINANT HUMAN
     Indication: Product used for unknown indication
     Route: 042

REACTIONS (5)
  - Device failure [Unknown]
  - Device occlusion [Unknown]
  - Device breakage [Unknown]
  - Drug dose omission by device [Unknown]
  - Haemorrhage [Unknown]
